FAERS Safety Report 5878820-6 (Version None)
Quarter: 2008Q3

REPORT INFORMATION
  Report Type: 
  Country: None (occurrence: None)
  Receive Date: 20080910
  Receipt Date: 20080910
  Transmission Date: 20090109
  Serious: Yes (Hospitalization)
  Sender: FDA-Public Use
  Company Number: None

PATIENT
  Age: 56 Year
  Sex: Female
  Weight: 70.3075 kg

DRUGS (2)
  1. NITROFURANTOIN [Suspect]
     Indication: CYSTITIS
     Dosage: 1 PILL TWICE PO ONLY USED ONE PILL
     Route: 048
  2. NITROFURANTOIN [Suspect]
     Dosage: 1 PILL DAILY PO USED TWO BUT ALREADY SICK
     Route: 048

REACTIONS (9)
  - BLOOD PRESSURE DECREASED [None]
  - CHILLS [None]
  - CONDITION AGGRAVATED [None]
  - CYSTITIS [None]
  - MALAISE [None]
  - PAIN [None]
  - PYREXIA [None]
  - SEPSIS [None]
  - VOMITING [None]
